FAERS Safety Report 9345850 (Version 1)
Quarter: 2013Q2

REPORT INFORMATION
  Report Type: Spontaneous
  Country: FR (occurrence: FR)
  Receive Date: 20130613
  Receipt Date: 20130613
  Transmission Date: 20140414
  Serious: Yes (Hospitalization)
  Sender: FDA-Public Use
  Company Number: FR-PFIZER INC-2013175284

PATIENT
  Age: 60 Year
  Sex: Male

DRUGS (13)
  1. ORELOX [Suspect]
     Indication: BRONCHITIS
     Dosage: 1 DF, 2X/DAY
     Route: 048
     Dates: start: 20130314, end: 20130316
  2. DETURGYLONE [Suspect]
     Indication: BRONCHITIS
     Dosage: UNK, DAILY
     Route: 045
     Dates: start: 20130314, end: 20130316
  3. EXOMUC [Suspect]
     Indication: BRONCHITIS
     Dosage: UNK
     Route: 048
     Dates: start: 20130314, end: 20130316
  4. SURBRONC [Suspect]
     Indication: BRONCHITIS
     Dosage: 1 DF, 2X/DAY
     Route: 048
     Dates: start: 20130314, end: 20130316
  5. LIPANTHYL [Concomitant]
     Dosage: UNK
  6. DAONIL [Concomitant]
     Dosage: UNK
  7. AVLOCARDYL [Concomitant]
     Dosage: UNK
  8. LANTUS [Concomitant]
     Dosage: UNK
  9. SYMBICORT [Concomitant]
     Dosage: UNK
  10. FUROSEMIDE [Concomitant]
     Dosage: UNK
  11. LEXOMIL [Concomitant]
     Dosage: UNK
  12. INEXIUM [Concomitant]
     Dosage: UNK
  13. DOLIPRANE [Concomitant]
     Dosage: UNK
     Dates: start: 20130314

REACTIONS (4)
  - Abdominal pain upper [Recovered/Resolved]
  - Nausea [Recovered/Resolved]
  - Food intolerance [Recovered/Resolved]
  - Rash erythematous [Recovering/Resolving]
